FAERS Safety Report 6790272-0 (Version None)
Quarter: 2010Q2

REPORT INFORMATION
  Report Type: 
  Country: None (occurrence: None)
  Receive Date: 20100624
  Receipt Date: 20100616
  Transmission Date: 20101027
  Serious: Yes (Other)
  Sender: FDA-Public Use
  Company Number: RU-ASTRAZENECA-2010SE28741

PATIENT
  Age: 16 Year
  Sex: Male
  Weight: 48 kg

DRUGS (5)
  1. MERONEM [Suspect]
     Indication: CYSTIC FIBROSIS
     Route: 042
     Dates: start: 20100607, end: 20100607
  2. ATACAND [Concomitant]
     Indication: COR PULMONALE CHRONIC
     Route: 048
     Dates: start: 20100606
  3. CREON [Concomitant]
     Indication: PANCREATIC INSUFFICIENCY
     Route: 048
     Dates: start: 20100606
  4. ACETYLCYSTEINE [Concomitant]
     Indication: PRODUCTIVE COUGH
     Route: 048
     Dates: start: 20100606
  5. TOBI [Concomitant]
     Indication: CYSTIC FIBROSIS
     Route: 055
     Dates: start: 20100606

REACTIONS (2)
  - PRURITUS [None]
  - RASH MACULAR [None]
